FAERS Safety Report 6154663-3 (Version None)
Quarter: 2009Q2

REPORT INFORMATION
  Report Type: 
  Country: None (occurrence: None)
  Receive Date: 20090414
  Receipt Date: 20090401
  Transmission Date: 20091009
  Serious: Yes (Hospitalization)
  Sender: FDA-Public Use
  Company Number: JP-ABBOTT-09P-087-0564601-00

PATIENT
  Age: 76 Year
  Sex: Male

DRUGS (6)
  1. LEUPLIN SR FOR INJECTION 11.25 MG [Suspect]
     Indication: PROSTATE CANCER STAGE II
     Dates: start: 20051228, end: 20061101
  2. LEUPLIN SR FOR INJECTION 11.25 MG [Suspect]
     Route: 058
     Dates: start: 20061129, end: 20071031
  3. LEUPLIN SR FOR INJECTION 11.25 MG [Suspect]
     Route: 058
     Dates: start: 20080318, end: 20080318
  4. LEUPLIN SR FOR INJECTION 11.25 MG [Suspect]
  5. CASODEX [Concomitant]
     Indication: PROSTATE CANCER STAGE II
     Route: 048
  6. EUGLUCON [Concomitant]
     Indication: DIABETES MELLITUS

REACTIONS (2)
  - FRACTURE [None]
  - URINARY RETENTION [None]
